FAERS Safety Report 14393453 (Version 1)
Quarter: 2018Q1

REPORT INFORMATION
  Report Type: Spontaneous
  Country: US (occurrence: US)
  Receive Date: 20180114
  Receipt Date: 20180114
  Transmission Date: 20180509
  Serious: Yes (Other)
  Sender: FDA-Public Use
  Company Number: None

PATIENT
  Age: 37 Year
  Sex: Female
  Weight: 83.7 kg

DRUGS (12)
  1. MOTRIN [Concomitant]
     Active Substance: IBUPROFEN
  2. ACETAZOLAMIDE. [Suspect]
     Active Substance: ACETAZOLAMIDE
     Indication: INTRACRANIAL PRESSURE INCREASED
     Dosage: ?          QUANTITY:2 TABLET(S);?
     Route: 048
     Dates: start: 20171229, end: 20180114
  3. ZOLOFT [Concomitant]
     Active Substance: SERTRALINE HYDROCHLORIDE
  4. NAPROXEN SODIUM. [Concomitant]
     Active Substance: NAPROXEN SODIUM
  5. MULTIVITAMIN [Concomitant]
     Active Substance: VITAMINS
  6. MAXALT [Concomitant]
     Active Substance: RIZATRIPTAN BENZOATE
  7. VITAMIN D [Concomitant]
     Active Substance: CHOLECALCIFEROL
  8. FISH OILS [Concomitant]
  9. ROBAXIN [Concomitant]
     Active Substance: METHOCARBAMOL
  10. LEVOTHYROXINE. [Concomitant]
     Active Substance: LEVOTHYROXINE
  11. COQ10 [Concomitant]
     Active Substance: UBIDECARENONE
  12. RIBOFLAVIN [Concomitant]
     Active Substance: RIBOFLAVIN

REACTIONS (3)
  - Diarrhoea [None]
  - Abdominal discomfort [None]
  - Haematochezia [None]

NARRATIVE: CASE EVENT DATE: 20180114
